FAERS Safety Report 5150885-9 (Version None)
Quarter: 2006Q4

REPORT INFORMATION
  Report Type: 
  Country: None (occurrence: None)
  Receive Date: 20061114
  Receipt Date: 20061103
  Transmission Date: 20070319
  Serious: Yes (Other)
  Sender: FDA-Public Use
  Company Number: CN-ELI_LILLY_AND_COMPANY-CN200611000517

PATIENT
  Age: 67 Year
  Sex: Male
  Weight: 48 kg

DRUGS (6)
  1. SODIUM BICARBONATE [Concomitant]
  2. ALIMTA [Suspect]
     Indication: LUNG CARCINOMA CELL TYPE UNSPECIFIED STAGE IV
     Dosage: 750 MG, OTHER
     Route: 042
     Dates: start: 20061023, end: 20061023
  3. DEXAMETHASONE TAB [Concomitant]
     Indication: SUPPLEMENTATION THERAPY
     Dosage: 4.5 MG, 2/D
     Route: 048
     Dates: start: 20061022, end: 20061024
  4. CENTRUM [Concomitant]
     Indication: SUPPLEMENTATION THERAPY
     Dosage: 1 TABLET, DAILY (1/D)
     Route: 048
     Dates: start: 20061019
  5. VITAMIN B-12 [Concomitant]
     Indication: SUPPLEMENTATION THERAPY
     Dosage: 1000 UG, ONCE
     Route: 030
     Dates: start: 20061024, end: 20061024
  6. ASPIRIN [Concomitant]
     Indication: PLATELET AGGREGATION
     Dosage: 25 MG, DAILY (1/D)
     Route: 048
     Dates: start: 20061020, end: 20061030

REACTIONS (13)
  - BLOOD CREATININE INCREASED [None]
  - BLOOD UREA INCREASED [None]
  - BLOOD URIC ACID INCREASED [None]
  - DIARRHOEA [None]
  - DYSPHAGIA [None]
  - FATIGUE [None]
  - GINGIVAL ULCERATION [None]
  - HYPERKALAEMIA [None]
  - OCCULT BLOOD POSITIVE [None]
  - PLATELET COUNT DECREASED [None]
  - PYREXIA [None]
  - RASH [None]
  - WHITE BLOOD CELL COUNT DECREASED [None]
